FAERS Safety Report 4693728-X (Version None)
Quarter: 2005Q2

REPORT INFORMATION
  Report Type: 
  Country: None (occurrence: None)
  Receive Date: 20050615
  Receipt Date: 20050602
  Transmission Date: 20051028
  Serious: Yes (Hospitalization)
  Sender: FDA-Public Use
  Company Number: HQWYE554405MAY05

PATIENT
  Age: 47 Year
  Sex: Female

DRUGS (1)
  1. EFFEXOR XR [Suspect]
     Dosage: APPROXIMATELY 100 CAPSULES (150 MG ) (OVERDOSE AMOUNT), ORAL
     Route: 048
     Dates: start: 20050427, end: 20050427

REACTIONS (7)
  - CONVULSION [None]
  - DIALYSIS [None]
  - ENDOSCOPY UPPER GASTROINTESTINAL TRACT ABNORMAL [None]
  - INTENTIONAL MISUSE [None]
  - OVERDOSE [None]
  - RENAL FAILURE [None]
  - RESPIRATORY FAILURE [None]
